FAERS Safety Report 6289817-9 (Version None)
Quarter: 2009Q3

REPORT INFORMATION
  Report Type: 
  Country: None (occurrence: None)
  Receive Date: 20090730
  Receipt Date: 20080807
  Transmission Date: 20100115
  Serious: No
  Sender: FDA-Public Use
  Company Number: US-BRISTOL-MYERS SQUIBB COMPANY-14293690

PATIENT
  Age: 82 Year
  Sex: Male
  Weight: 75 kg

DRUGS (3)
  1. COUMADIN [Suspect]
     Indication: HEART VALVE REPLACEMENT
  2. LANOXIN [Concomitant]
  3. ARICEPT [Concomitant]

REACTIONS (3)
  - BRONCHITIS [None]
  - CONSTIPATION [None]
  - PARANASAL SINUS HYPERSECRETION [None]
